FAERS Safety Report 7381276-8 (Version None)
Quarter: 2011Q1

REPORT INFORMATION
  Report Type: 
  Country: None (occurrence: None)
  Receive Date: 20110321
  Receipt Date: 20110315
  Transmission Date: 20110831
  Serious: Yes (Hospitalization)
  Sender: FDA-Public Use
  Company Number: UTC-005740

PATIENT
  Age: 28 Year
  Sex: Female

DRUGS (2)
  1. REMODULIN [Suspect]
     Indication: PULMONARY ARTERIAL HYPERTENSION
     Dosage: SUBCUTANEOUS
     Route: 058
     Dates: start: 20101101
  2. AMBRISENTAN (AMBRISENTAN) [Suspect]
     Indication: PULMONARY ARTERIAL HYPERTENSION
     Dosage: ORAL
     Route: 048
     Dates: end: 20101025

REACTIONS (5)
  - CONSTIPATION [None]
  - ABDOMINAL PAIN [None]
  - EXERCISE TOLERANCE DECREASED [None]
  - SYNCOPE [None]
  - ACTIVITIES OF DAILY LIVING IMPAIRED [None]
